FAERS Safety Report 18635396 (Version 1)
Quarter: 2020Q4

REPORT INFORMATION
  Report Type: Spontaneous
  Country: US (occurrence: US)
  Receive Date: 20201218
  Receipt Date: 20201218
  Transmission Date: 20210114
  Serious: No
  Sender: FDA-Public Use
  Company Number: US-THERAPEUTICSMD-2020TMD04166

PATIENT
  Sex: Female

DRUGS (2)
  1. UNSPECIFIED CREAM [Suspect]
     Active Substance: UNSPECIFIED INGREDIENT
     Dosage: UNK
  2. IMVEXXY [Suspect]
     Active Substance: ESTRADIOL
     Dosage: UNK, 2X/WEEK

REACTIONS (2)
  - Off label use [Unknown]
  - Vaginal discharge [Unknown]
